FAERS Safety Report 18905763 (Version 1)
Quarter: 2021Q1

REPORT INFORMATION
  Report Type: Spontaneous
  Country: US (occurrence: US)
  Receive Date: 20210217
  Receipt Date: 20210217
  Transmission Date: 20210420
  Serious: No
  Sender: FDA-Public Use
  Company Number: US-BAYER-2021-055500

PATIENT
  Age: 45 Year
  Sex: Male

DRUGS (2)
  1. RAPIFLO [Concomitant]
     Indication: PROSTATOMEGALY
     Dosage: UNK
     Dates: start: 20190101
  2. CLARITIN?D 24 HOUR [Suspect]
     Active Substance: LORATADINE\PSEUDOEPHEDRINE SULFATE
     Indication: NASAL CONGESTION
     Dosage: 240 MG
     Dates: start: 20200101

REACTIONS (1)
  - Therapeutic response unexpected [Recovering/Resolving]

NARRATIVE: CASE EVENT DATE: 20200101
